FAERS Safety Report 7829483-1 (Version None)
Quarter: 2011Q4

REPORT INFORMATION
  Report Type: 
  Country: None (occurrence: None)
  Receive Date: 20111020
  Receipt Date: 20111011
  Transmission Date: 20120403
  Serious: Yes (Hospitalization, Other)
  Sender: FDA-Public Use
  Company Number: US-ROCHE-712695

PATIENT
  Sex: Female
  Weight: 59 kg

DRUGS (3)
  1. ACCUTANE [Suspect]
     Indication: ACNE
     Route: 065
     Dates: start: 19980326, end: 19990101
  2. IBUPROFEN [Concomitant]
  3. YASMIN [Concomitant]
     Route: 048

REACTIONS (7)
  - SMALL INTESTINAL OBSTRUCTION [None]
  - IRRITABLE BOWEL SYNDROME [None]
  - ANASTOMOTIC STENOSIS [None]
  - INFLAMMATORY BOWEL DISEASE [None]
  - ORAL HERPES [None]
  - DEPRESSION [None]
  - COLITIS ULCERATIVE [None]
